FAERS Safety Report 6319825-0 (Version None)
Quarter: 2009Q3

REPORT INFORMATION
  Report Type: 
  Country: None (occurrence: None)
  Receive Date: 20090822
  Receipt Date: 20081121
  Transmission Date: 20100115
  Serious: No
  Sender: FDA-Public Use
  Company Number: US-ABBOTT-08P-163-0478693-00

PATIENT
  Sex: Female
  Weight: 56.75 kg

DRUGS (8)
  1. NIASPAN [Suspect]
     Indication: BLOOD CHOLESTEROL INCREASED
     Route: 048
     Dates: start: 20080425
  2. NIASPAN [Suspect]
     Dates: end: 20080918
  3. GLICLAZIDE [Concomitant]
     Indication: HYPERTENSION
     Route: 048
     Dates: start: 19910101
  4. ALENDRONATE SODIUM [Concomitant]
     Indication: BONE DISORDER
     Route: 048
     Dates: start: 20020101
  5. METOPROLOL SUCCINATE [Concomitant]
     Indication: BLOOD PRESSURE
     Route: 048
  6. CENTRUM SILVER [Concomitant]
     Indication: DRUG USE FOR UNKNOWN INDICATION
  7. ERGOCALCIFEROL [Concomitant]
     Indication: DRUG USE FOR UNKNOWN INDICATION
  8. AMITRIPTYLINE [Concomitant]
     Indication: VAGINAL INFECTION

REACTIONS (6)
  - FLUSHING [None]
  - GENITAL BURNING SENSATION [None]
  - HAEMORRHOIDAL HAEMORRHAGE [None]
  - PRURITUS [None]
  - RASH [None]
  - SKIN BURNING SENSATION [None]
